FAERS Safety Report 12888266 (Version 2)
Quarter: 2016Q4

REPORT INFORMATION
  Report Type: Spontaneous
  Country: US (occurrence: US)
  Receive Date: 20161027
  Receipt Date: 20161214
  Transmission Date: 20170207
  Serious: No
  Sender: FDA-Public Use
  Company Number: PHHY2016US148076

PATIENT

DRUGS (1)
  1. ZOFRAN [Suspect]
     Active Substance: ONDANSETRON HYDROCHLORIDE
     Indication: PRODUCT USED FOR UNKNOWN INDICATION
     Dosage: 4 MG, QID
     Route: 065
     Dates: start: 201011, end: 20110123

REACTIONS (8)
  - Emotional distress [Unknown]
  - Anxiety [Unknown]
  - Injury [Unknown]
  - Pain [Unknown]
  - Anhedonia [Unknown]
  - Product use issue [Unknown]
  - Asthma [Not Recovered/Not Resolved]
  - Maternal exposure during pregnancy [Unknown]
